FAERS Safety Report 15215572 (Version 1)
Quarter: 2018Q3

REPORT INFORMATION
  Report Type: Spontaneous
  Country: US (occurrence: US)
  Receive Date: 20180703
  Receipt Date: 20180703
  Transmission Date: 20181010
  Serious: Yes (Other)
  Sender: FDA-Public Use
  Company Number: None

PATIENT
  Age: 64 Year
  Sex: Female
  Weight: 63 kg

DRUGS (2)
  1. BUPROPION SR [Suspect]
     Active Substance: BUPROPION HYDROCHLORIDE
     Indication: MAJOR DEPRESSION
     Route: 048
     Dates: start: 20161227, end: 20170925
  2. IMIPRAMINE [Concomitant]
     Active Substance: IMIPRAMINE
     Dates: start: 20050101

REACTIONS (2)
  - Cognitive disorder [None]
  - Cerebral small vessel ischaemic disease [None]

NARRATIVE: CASE EVENT DATE: 20170925
